FAERS Safety Report 5113865-5 (Version None)
Quarter: 2006Q3

REPORT INFORMATION
  Report Type: 
  Country: None (occurrence: None)
  Receive Date: 20060921
  Receipt Date: 20060905
  Transmission Date: 20061208
  Serious: Yes (Other)
  Sender: FDA-Public Use
  Company Number: 8016144

PATIENT
  Age: 56 Year
  Sex: Female

DRUGS (6)
  1. KEPPRA [Suspect]
     Dosage: 750 MG 2/D PO
     Route: 048
  2. KEPPRA [Suspect]
     Dosage: 1125 MG PO
     Route: 048
     Dates: start: 20060301
  3. HORMONE PREPARATION [Suspect]
     Dosage: PO
     Route: 048
     Dates: start: 20040101, end: 20060101
  4. AVAPRO [Concomitant]
  5. CLARITIN [Concomitant]
  6. PRILOSEC [Concomitant]

REACTIONS (4)
  - ALOPECIA [None]
  - CHRONIC LYMPHOCYTIC LEUKAEMIA STAGE 0 [None]
  - HAIR TEXTURE ABNORMAL [None]
  - HYPOTRICHOSIS [None]
